FAERS Safety Report 5612428-2 (Version None)
Quarter: 2008Q1

REPORT INFORMATION
  Report Type: 
  Country: None (occurrence: None)
  Receive Date: 20080204
  Receipt Date: 20080123
  Transmission Date: 20080703
  Serious: Yes (Hospitalization)
  Sender: FDA-Public Use
  Company Number: JP-ROCHE-542718

PATIENT
  Age: 5 Year
  Sex: Male
  Weight: 23 kg

DRUGS (7)
  1. TAMIFLU [Suspect]
     Dosage: DRUG: TAMIFLU DRY SYRUP 3 %
     Route: 048
     Dates: start: 20080112, end: 20080112
  2. ZITHROMAX [Concomitant]
     Route: 048
     Dates: start: 20080111, end: 20080112
  3. LACBON [Concomitant]
     Route: 048
     Dates: start: 20080111, end: 20080112
  4. MUCODYNE [Concomitant]
     Route: 048
     Dates: start: 20080112, end: 20080112
  5. ASVERIN [Concomitant]
     Route: 048
     Dates: start: 20080112, end: 20080112
  6. MEPTIN [Concomitant]
     Route: 048
     Dates: start: 20080112, end: 20080112
  7. 1 CONCOMITANT DRUG [Concomitant]
     Dosage: FORM: LOZENGE, ROUTE: OROPHARINGEAL DRUG: PROCHES (COMP).
     Route: 050
     Dates: start: 20080112, end: 20080112

REACTIONS (2)
  - ABNORMAL BEHAVIOUR [None]
  - HALLUCINATION [None]
